FAERS Safety Report 9719463 (Version 3)
Quarter: 2014Q1

REPORT INFORMATION
  Report Type: Report from Study
  Country: GB (occurrence: GB)
  Receive Date: 20131128
  Receipt Date: 20140118
  Transmission Date: 20141002
  Serious: Yes (Other)
  Sender: FDA-Public Use
  Company Number: GB-ROCHE-1310511

PATIENT
  Age: 76 Year
  Sex: Male
  Weight: 70 kg

DRUGS (3)
  1. RANIBIZUMAB [Suspect]
     Indication: AGE-RELATED MACULAR DEGENERATION
     Dosage: THE DATE OF MOST RECENT DOSE: 07/MAR/2013
     Route: 050
     Dates: start: 20130103
  2. COD LIVER OIL [Concomitant]
  3. SIMVASTATIN [Concomitant]
     Route: 065
     Dates: start: 2006

REACTIONS (1)
  - Angina pectoris [Recovered/Resolved]
